FAERS Safety Report 11243957 (Version 2)
Quarter: 2016Q2

REPORT INFORMATION
  Report Type: Spontaneous
  Country: FR (occurrence: FR)
  Receive Date: 20150707
  Receipt Date: 20160518
  Transmission Date: 20160815
  Serious: Yes (Life-Threatening)
  Sender: FDA-Public Use
  Company Number: FR-PFIZER INC-2015194496

PATIENT
  Age: 59 Year
  Sex: Male

DRUGS (35)
  1. VANCOMYCIN SANDOZ [Suspect]
     Active Substance: VANCOMYCIN
     Indication: STAPHYLOCOCCAL INFECTION
     Dosage: 1 OR 2G DAILY
     Route: 042
     Dates: start: 20150425, end: 20150507
  2. VANCOMYCIN SANDOZ [Suspect]
     Active Substance: VANCOMYCIN
     Indication: SEPTIC SHOCK
  3. TRIFLUCAN [Concomitant]
     Active Substance: FLUCONAZOLE
     Indication: GENITOURINARY TRACT INFECTION
  4. CLAFORAN [Concomitant]
     Active Substance: CEFOTAXIME SODIUM
     Indication: SEPSIS
     Dosage: UNK
     Dates: start: 20150405, end: 20150413
  5. TAZOCILLINE [Suspect]
     Active Substance: PIPERACILLIN SODIUM\TAZOBACTAM SODIUM
     Indication: LUNG INFECTION
     Dosage: 4 G, 3X/DAY (EVERY 8 HOURS)
     Route: 041
     Dates: start: 20150425, end: 20150507
  6. TAZOCILLINE [Suspect]
     Active Substance: PIPERACILLIN SODIUM\TAZOBACTAM SODIUM
     Indication: STAPHYLOCOCCAL INFECTION
  7. MOPRAL [Concomitant]
     Active Substance: OMEPRAZOLE SODIUM
     Dosage: 40 MG, DAILY
     Dates: start: 20150531, end: 20150601
  8. BURINEX [Concomitant]
     Active Substance: BUMETANIDE
  9. CORDARONE [Concomitant]
     Active Substance: AMIODARONE HYDROCHLORIDE
  10. ROVAMYCIN [Concomitant]
     Active Substance: SPIRAMYCIN
     Indication: SEPSIS
     Dosage: UNK
     Dates: start: 201504
  11. ATARAX [Concomitant]
     Active Substance: HYDROXYZINE\HYDROXYZINE HYDROCHLORIDE
  12. BRISTOPEN [Concomitant]
     Active Substance: OXACILLIN SODIUM
     Indication: STAPHYLOCOCCAL INFECTION
     Dosage: UNK
     Dates: start: 20150518
  13. TRANXENE T-TAB [Concomitant]
     Active Substance: CLORAZEPATE DIPOTASSIUM
  14. OFLOCET [Concomitant]
     Active Substance: OFLOXACIN
     Indication: SEPSIS
     Dosage: UNK
     Dates: start: 20150407, end: 20150420
  15. TAZOCILLINE [Suspect]
     Active Substance: PIPERACILLIN SODIUM\TAZOBACTAM SODIUM
     Indication: SEPSIS
     Dosage: 4 G, 3X/DAY (EVERY 8 HOURS)
     Route: 041
     Dates: start: 20150413, end: 20150419
  16. TRIFLUCAN [Concomitant]
     Active Substance: FLUCONAZOLE
     Indication: PYREXIA
     Dosage: 400 MG, DAILY
     Dates: end: 20150531
  17. PARACETAMOL [Concomitant]
     Active Substance: ACETAMINOPHEN
  18. LASILIX [Concomitant]
     Active Substance: FUROSEMIDE
  19. FLAGYL [Concomitant]
     Active Substance: METRONIDAZOLE\METRONIDAZOLE HYDROCHLORIDE
     Indication: SEPSIS
     Dosage: UNK
     Dates: start: 201504
  20. TAZOCILLINE [Suspect]
     Active Substance: PIPERACILLIN SODIUM\TAZOBACTAM SODIUM
     Indication: ATELECTASIS
     Dosage: 4 G, 3X/DAY (EVERY 8 HOURS)
     Route: 041
     Dates: start: 20150601, end: 20150601
  21. TARGOCID [Suspect]
     Active Substance: TEICOPLANIN
     Dosage: 800 MG, 2X/DAY (EVERY 12 HOURS)
     Route: 041
     Dates: start: 20150522, end: 20150522
  22. SYMBICORT [Concomitant]
     Active Substance: BUDESONIDE\FORMOTEROL FUMARATE DIHYDRATE
     Dosage: 1 DF, 2X/DAY (IN THE MORNING AND IN THE EVENING)
  23. ACUPAN [Concomitant]
     Active Substance: NEFOPAM HYDROCHLORIDE
  24. TARGOCID [Suspect]
     Active Substance: TEICOPLANIN
     Indication: SEPTIC SHOCK
     Dosage: 400 MG, 2X/DAY (EVERY 12 HOURS)
     Route: 041
     Dates: start: 20150521, end: 20150521
  25. TARGOCID [Suspect]
     Active Substance: TEICOPLANIN
     Dosage: 800 MG, 2X/DAY (EVERY 12 HOURS)
     Route: 041
     Dates: start: 20150601, end: 20150601
  26. TRIFLUCAN [Concomitant]
     Active Substance: FLUCONAZOLE
     Indication: CANDIDA INFECTION
     Dosage: 800 MG, DAILY
     Dates: start: 20150518
  27. VANCOMYCIN SANDOZ [Suspect]
     Active Substance: VANCOMYCIN
     Indication: DEVICE RELATED INFECTION
     Dosage: 1.5 G, DAILY
     Route: 042
     Dates: start: 20150521, end: 20150521
  28. CIFLOX [Concomitant]
     Active Substance: CIPROFLOXACIN
     Dosage: 1.2 G, DAILY
     Dates: start: 20150425, end: 20150507
  29. CLAFORAN [Concomitant]
     Active Substance: CEFOTAXIME SODIUM
     Indication: LUNG DISORDER
  30. OFLOCET [Concomitant]
     Active Substance: OFLOXACIN
     Indication: LUNG DISORDER
  31. MOPRAL [Concomitant]
     Active Substance: OMEPRAZOLE SODIUM
     Dosage: 40 MG, DAILY
     Dates: start: 20150527, end: 20150529
  32. SEEBRI [Concomitant]
     Active Substance: GLYCOPYRRONIUM
     Dosage: 1 DF, DAILY
  33. AIROMIR [Concomitant]
     Active Substance: ALBUTEROL SULFATE
     Dosage: 2 PUFFS, DAILY
  34. ROVAMYCIN [Concomitant]
     Active Substance: SPIRAMYCIN
     Indication: LUNG DISORDER
  35. FLAGYL [Concomitant]
     Active Substance: METRONIDAZOLE\METRONIDAZOLE HYDROCHLORIDE
     Indication: LUNG DISORDER

REACTIONS (4)
  - Eosinophilia [Recovered/Resolved]
  - Dermatitis exfoliative [Recovered/Resolved]
  - Renal impairment [Unknown]
  - Linear IgA disease [Recovered/Resolved]

NARRATIVE: CASE EVENT DATE: 20150425
